FAERS Safety Report 6678870-6 (Version None)
Quarter: 2010Q2

REPORT INFORMATION
  Report Type: 
  Country: None (occurrence: None)
  Receive Date: 20100408
  Receipt Date: 20100401
  Transmission Date: 20101027
  Serious: Yes (Death)
  Sender: FDA-Public Use
  Company Number: 2010JP001654

PATIENT
  Age: 63 Year
  Sex: Male
  Weight: 72 kg

DRUGS (12)
  1. TACROLIMUS [Suspect]
     Indication: INTERSTITIAL LUNG DISEASE
     Dosage: 4 MG, ORAL; 2 MG, ORAL; 3 MG, ORAL; 1 MG, ORAL
     Route: 048
     Dates: start: 20090721, end: 20091123
  2. TACROLIMUS [Suspect]
     Indication: INTERSTITIAL LUNG DISEASE
     Dosage: 4 MG, ORAL; 2 MG, ORAL; 3 MG, ORAL; 1 MG, ORAL
     Route: 048
     Dates: start: 20091124, end: 20091221
  3. TACROLIMUS [Suspect]
     Indication: INTERSTITIAL LUNG DISEASE
     Dosage: 4 MG, ORAL; 2 MG, ORAL; 3 MG, ORAL; 1 MG, ORAL
     Route: 048
     Dates: start: 20081219
  4. PROGRAF [Suspect]
     Dosage: 1 MG, ORAL
     Route: 048
     Dates: start: 20091222
  5. PREDNISOLONE [Concomitant]
  6. PREDNISOLONE TAB [Concomitant]
  7. PARIET (RABEPRAZOLE SODIUM) TABLET [Concomitant]
  8. MAGLAX (MAGNESIUM OXIDE) TABLET [Concomitant]
  9. ALOSENN (ACHILLEA MILLEFOLIUM, RUBIA TINCTORUM ROOT TINCTURE, SENNA AL [Concomitant]
  10. PRAVASTATIN SODIUM [Concomitant]
  11. FASTIC (NATEGLINIDE) TABLET [Concomitant]
  12. BONALON (ALENDRONIC ACID) TABLET [Concomitant]

REACTIONS (8)
  - BLOOD CREATININE INCREASED [None]
  - CHILLS [None]
  - CONDITION AGGRAVATED [None]
  - COUGH [None]
  - INTERSTITIAL LUNG DISEASE [None]
  - MALAISE [None]
  - PNEUMONIA BACTERIAL [None]
  - PYREXIA [None]
